FAERS Safety Report 6570459-2 (Version None)
Quarter: 2010Q1

REPORT INFORMATION
  Report Type: 
  Country: None (occurrence: None)
  Receive Date: 20100204
  Receipt Date: 20090720
  Transmission Date: 20100710
  Serious: No
  Sender: FDA-Public Use
  Company Number: A0797663A

PATIENT
  Age: 74 Year
  Sex: Male

DRUGS (3)
  1. ARIXTRA [Suspect]
     Dosage: 7.5MG PER DAY
     Route: 058
     Dates: start: 20090622
  2. LISINOPRIL [Concomitant]
  3. VITAMINS [Concomitant]

REACTIONS (3)
  - INJECTION SITE HAEMATOMA [None]
  - INJECTION SITE INDURATION [None]
  - INJECTION SITE PAIN [None]
